FAERS Safety Report 8415244-1 (Version None)
Quarter: 2012Q2

REPORT INFORMATION
  Report Type: 
  Country: None (occurrence: None)
  Receive Date: 20120323
  Receipt Date: 20111207
  Transmission Date: 20120825
  Serious: Yes (Hospitalization, Other)
  Sender: FDA-Public Use
  Company Number: 163-21880-11121154

PATIENT
  Age: 60 Year
  Sex: Male

DRUGS (15)
  1. PANTOPRAZOLE [Concomitant]
  2. COLCHICINE (COLCHICINE) (UNKNOWN) [Concomitant]
  3. CYCLOBENZAPRINE [Concomitant]
  4. SMZ/TMP (BACTRIM) (UNKNOWN) [Concomitant]
  5. MAGNESIUM OXIDE (MAGNESIUM OXIDE) (UNKNOWN) [Concomitant]
  6. REVLIMID [Suspect]
     Indication: MULTIPLE MYELOMA
     Dosage: 25 MG, QD X 21 DAYS, PO 15 MG, DAILY X 21 DAYS, PO
     Route: 048
     Dates: start: 20111201
  7. REVLIMID [Suspect]
     Indication: MULTIPLE MYELOMA
     Dosage: 25 MG, QD X 21 DAYS, PO 15 MG, DAILY X 21 DAYS, PO
     Route: 048
     Dates: start: 20090923, end: 20111204
  8. ALLOPURINOL [Concomitant]
  9. KCL (POTASSIUM CHLORIDE) (UNKNOWN) [Concomitant]
  10. METRONIDAZOLE [Concomitant]
  11. CIPROFLOXACIN [Concomitant]
  12. ACYCLOVIR (ACICLOVIR) (UNKNOWN) [Concomitant]
  13. DEXAMETHASONE [Concomitant]
  14. AZITHROMYCIN [Concomitant]
  15. CEFUROXIME (CEFUROXIME) (UNKNOWN) [Concomitant]

REACTIONS (5)
  - DEHYDRATION [None]
  - INFLUENZA [None]
  - NASOPHARYNGITIS [None]
  - INFECTION [None]
  - DECREASED APPETITE [None]
